FAERS Safety Report 6136532-8 (Version None)
Quarter: 2009Q1

REPORT INFORMATION
  Report Type: 
  Country: None (occurrence: None)
  Receive Date: 20090330
  Receipt Date: 20090220
  Transmission Date: 20090719
  Serious: Yes (Death, Other)
  Sender: FDA-Public Use
  Company Number: IN-PFIZER INC-2008053107

PATIENT

DRUGS (1)
  1. SUTENT [Suspect]
     Indication: GASTROINTESTINAL STROMAL TUMOUR
     Route: 048

REACTIONS (12)
  - BACK PAIN [None]
  - BONE PAIN [None]
  - DEATH [None]
  - HEADACHE [None]
  - JAUNDICE [None]
  - METASTASIS [None]
  - MUSCULOSKELETAL CHEST PAIN [None]
  - MUSCULOSKELETAL STIFFNESS [None]
  - NECK PAIN [None]
  - PROSTATOMEGALY [None]
  - SKIN IRRITATION [None]
  - UMBILICAL HERNIA [None]
